FAERS Safety Report 8332899-0 (Version None)
Quarter: 2012Q1

REPORT INFORMATION
  Report Type: 
  Country: None (occurrence: None)
  Receive Date: 20120315
  Receipt Date: 20110216
  Transmission Date: 20120608
  Serious: No
  Sender: FDA-Public Use
  Company Number: PHHY2010US76513

PATIENT
  Age: 38 Year
  Sex: Male
  Weight: 180 kg

DRUGS (1)
  1. GILENYA [Suspect]
     Indication: MULTIPLE SCLEROSIS
     Dosage: 0.5 MG, QD, ORAL ; 0.5 MG, QOD, ORAL
     Route: 048
     Dates: start: 20101001

REACTIONS (8)
  - MUSCLE SPASMS [None]
  - PAIN IN EXTREMITY [None]
  - CHILLS [None]
  - FATIGUE [None]
  - NASOPHARYNGITIS [None]
  - INCORRECT DRUG ADMINISTRATION DURATION [None]
  - WHITE BLOOD CELL DISORDER [None]
  - MEMORY IMPAIRMENT [None]
